FAERS Safety Report 6764389-0 (Version None)
Quarter: 2010Q2

REPORT INFORMATION
  Report Type: 
  Country: None (occurrence: None)
  Receive Date: 20100610
  Receipt Date: 20100601
  Transmission Date: 20101027
  Serious: Yes (Death)
  Sender: FDA-Public Use
  Company Number: US-PFIZER INC-2010069208

PATIENT
  Sex: Female

DRUGS (1)
  1. NORVASC [Suspect]

REACTIONS (1)
  - DEATH [None]
